FAERS Safety Report 21574054 (Version 2)
Quarter: 2022Q4

REPORT INFORMATION
  Report Type: Spontaneous
  Country: US (occurrence: US)
  Receive Date: 20221109
  Receipt Date: 20221215
  Transmission Date: 20230113
  Serious: No
  Sender: FDA-Public Use
  Company Number: US-BAUSCH-BL-2022-024822

PATIENT
  Age: 72 Year
  Sex: Male
  Weight: 53.572 kg

DRUGS (4)
  1. DIAZEPAM [Suspect]
     Active Substance: DIAZEPAM
     Indication: Dystonia
     Route: 054
  2. DIAZEPAM [Suspect]
     Active Substance: DIAZEPAM
     Dosage: AS NEEDED
     Route: 054
  3. PREVACID [Concomitant]
     Active Substance: LANSOPRAZOLE
     Indication: Product used for unknown indication
  4. ULTRAM [Concomitant]
     Active Substance: TRAMADOL HYDROCHLORIDE
     Indication: Product used for unknown indication

REACTIONS (2)
  - Hypersensitivity [Unknown]
  - Product substitution issue [Unknown]
